FAERS Safety Report 20973950 (Version 1)
Quarter: 2022Q2

REPORT INFORMATION
  Report Type: Spontaneous
  Country: KZ (occurrence: None)
  Receive Date: 20220617
  Receipt Date: 20220617
  Transmission Date: 20220721
  Serious: Yes (Other)
  Sender: FDA-Public Use
  Company Number: KZ-ROCHE-3116270

PATIENT
  Sex: Male

DRUGS (3)
  1. ATEZOLIZUMAB [Suspect]
     Active Substance: ATEZOLIZUMAB
     Indication: Product used for unknown indication
     Route: 065
  2. CARBOPLATIN [Suspect]
     Active Substance: CARBOPLATIN
     Indication: Product used for unknown indication
     Route: 065
  3. ETOPOSIDE [Suspect]
     Active Substance: ETOPOSIDE
     Indication: Product used for unknown indication
     Route: 065

REACTIONS (22)
  - Hypothyroidism [Unknown]
  - Vomiting [Unknown]
  - Eructation [Unknown]
  - Dyspepsia [Unknown]
  - Pancreatic failure [Unknown]
  - Constipation [Unknown]
  - Asthenia [Unknown]
  - Decreased appetite [Unknown]
  - Diarrhoea [Unknown]
  - Irritability [Unknown]
  - Blood thyroid stimulating hormone increased [Unknown]
  - General physical health deterioration [Unknown]
  - Muscular weakness [Unknown]
  - Motor dysfunction [Unknown]
  - Muscular weakness [Unknown]
  - Pruritus [Unknown]
  - Somnolence [Unknown]
  - Insomnia [Unknown]
  - Asthenia [Unknown]
  - Flatulence [Unknown]
  - Fall [Unknown]
  - Gait disturbance [Unknown]
